FAERS Safety Report 10128426 (Version 2)
Quarter: 2014Q2

REPORT INFORMATION
  Report Type: Other
  Country: JP (occurrence: JP)
  Receive Date: 20140428
  Receipt Date: 20140530
  Transmission Date: 20141212
  Serious: Yes (Death)
  Sender: FDA-Public Use
  Company Number: JP-BRISTOL-MYERS SQUIBB COMPANY-20674818

PATIENT
  Age: 76 Year
  Sex: Male
  Weight: 51 kg

DRUGS (8)
  1. ERBITUX SOLN FOR INF 5MG/ML [Suspect]
     Indication: RECTAL CANCER
     Route: 041
  2. IRINOTECAN HCL [Concomitant]
     Indication: RECTAL CANCER
     Route: 041
     Dates: start: 20130821, end: 20130821
  3. 5-FU [Concomitant]
     Indication: RECTAL CANCER
     Route: 041
     Dates: start: 20130821, end: 20130821
  4. CALCIUM FOLINATE [Concomitant]
     Indication: RECTAL CANCER
     Route: 041
     Dates: start: 20130821, end: 20130821
  5. RESTAMIN [Concomitant]
     Indication: PROPHYLAXIS
     Route: 048
  6. DECADRON [Concomitant]
     Indication: PROPHYLAXIS
     Route: 041
     Dates: start: 20130821, end: 20130821
  7. ALOXI [Concomitant]
     Indication: PROPHYLAXIS
     Route: 041
     Dates: start: 20130821, end: 20130821
  8. FOSAPREPITANT [Concomitant]
     Indication: PROPHYLAXIS
     Route: 041
     Dates: start: 20130821, end: 20130821

REACTIONS (2)
  - Interstitial lung disease [Fatal]
  - Neutrophil count decreased [Unknown]
